FAERS Safety Report 5288774-1 (Version None)
Quarter: 2007Q2

REPORT INFORMATION
  Report Type: 
  Country: None (occurrence: None)
  Receive Date: 20070405
  Receipt Date: 20070402
  Transmission Date: 20071010
  Serious: Yes (Other)
  Sender: FDA-Public Use
  Company Number: GB-GILEAD-2007-0011795

PATIENT
  Age: 71 Year
  Sex: Female
  Weight: 56.5 kg

DRUGS (10)
  1. VIREAD [Suspect]
     Indication: HEPATIC CIRRHOSIS
     Route: 048
     Dates: start: 20061101, end: 20070310
  2. VIREAD [Suspect]
     Indication: HEPATITIS B
  3. CIPROFLOXACIN [Concomitant]
     Route: 048
  4. LAMIVUDINE [Concomitant]
     Indication: HEPATIC CIRRHOSIS
     Route: 048
     Dates: start: 20050601
  5. LAMIVUDINE [Concomitant]
     Indication: HEPATITIS B
  6. LANSOPRAZOLE [Concomitant]
     Route: 048
  7. PABRINEX [Concomitant]
  8. SPIRONOLACTONE [Concomitant]
     Indication: ASCITES
     Route: 048
  9. THIAMINE [Concomitant]
  10. VITAMIN K [Concomitant]

REACTIONS (1)
  - PANCYTOPENIA [None]
